FAERS Safety Report 6288233-3 (Version None)
Quarter: 2009Q3

REPORT INFORMATION
  Report Type: 
  Country: None (occurrence: None)
  Receive Date: 20090729
  Receipt Date: 20090721
  Transmission Date: 20100115
  Serious: Yes (Hospitalization)
  Sender: FDA-Public Use
  Company Number: JP-ASTRAZENECA-2009SE03145

PATIENT
  Age: 45 Year
  Sex: Female

DRUGS (7)
  1. BLOPRESS [Suspect]
     Indication: HYPERTENSION
     Route: 048
     Dates: start: 20090601
  2. CEFTRIAXON [Concomitant]
     Route: 065
     Dates: start: 20090601
  3. CLYNDAMYCIN [Concomitant]
     Route: 065
     Dates: start: 20090601
  4. GLIMEPIRIDE [Concomitant]
     Route: 065
     Dates: start: 20090601
  5. AMLODIPINE [Concomitant]
     Route: 065
     Dates: start: 20090601
  6. GABAPENTIN [Concomitant]
     Route: 065
     Dates: start: 20090601
  7. BETAHISTINE MESILATE [Concomitant]
     Route: 065
     Dates: start: 20090601

REACTIONS (1)
  - STEVENS-JOHNSON SYNDROME [None]
